FAERS Safety Report 9177914 (Version 1)
Quarter: 2013Q1

REPORT INFORMATION
  Report Type: Spontaneous
  Country: US (occurrence: US)
  Receive Date: 20130321
  Receipt Date: 20130321
  Transmission Date: 20140127
  Serious: Yes (Other)
  Sender: FDA-Public Use
  Company Number: US-ASTRAZENECA-2013SE16547

PATIENT
  Age: 25406 Day
  Sex: Female
  Weight: 76.2 kg

DRUGS (3)
  1. LISINOPRIL [Suspect]
     Indication: HYPERTENSION
     Dosage: GENERIC, 10 MG, DAILY
     Route: 048
  2. CRESTOR [Suspect]
     Indication: BLOOD CHOLESTEROL ABNORMAL
     Route: 048
  3. ARIMIDEX [Suspect]
     Indication: BREAST CANCER FEMALE
     Route: 048
     Dates: start: 201107

REACTIONS (7)
  - Breast cancer [Unknown]
  - Alopecia [Unknown]
  - Hair texture abnormal [Unknown]
  - Hypoaesthesia [Unknown]
  - Blood cholesterol increased [Unknown]
  - Hypoaesthesia [Unknown]
  - Paraesthesia [Unknown]
